FAERS Safety Report 20575374 (Version 1)
Quarter: 2022Q1

REPORT INFORMATION
  Report Type: Spontaneous
  Country: US (occurrence: US)
  Receive Date: 20220310
  Receipt Date: 20220310
  Transmission Date: 20220423
  Serious: Yes (Death, Hospitalization)
  Sender: FDA-Public Use
  Company Number: US-ALKEM LABORATORIES LIMITED-US-ALKEM-2022-01702

PATIENT
  Age: 61 Year
  Sex: Female

DRUGS (3)
  1. COLCHICINE [Suspect]
     Active Substance: COLCHICINE
     Indication: Gout
     Dosage: 1.2 MILLIGRAM, QD (DAILY)
     Route: 065
  2. SIMVASTATIN [Suspect]
     Active Substance: SIMVASTATIN
     Indication: Product used for unknown indication
     Dosage: 30 MILLIGRAM, QD (DAILY)
     Route: 065
  3. SIMVASTATIN [Suspect]
     Active Substance: SIMVASTATIN
     Dosage: 60 MILLIGRAM, QD (DAILY) FOR 3 MONTHS PRIOR TO COLCHICINE
     Route: 065

REACTIONS (2)
  - Myopathy [Fatal]
  - Drug interaction [Unknown]
